FAERS Safety Report 5264671-2 (Version None)
Quarter: 2007Q1

REPORT INFORMATION
  Report Type: 
  Country: None (occurrence: None)
  Receive Date: 20061124
  Receipt Date: 20060822
  Transmission Date: 20070707
  Serious: Yes (Disabling)
  Sender: FDA-Public Use
  Company Number: 2006103476

PATIENT
  Age: 44 Year
  Sex: Female

DRUGS (3)
  1. CADUET [Suspect]
     Indication: BLOOD CHOLESTEROL INCREASED
     Dosage: 20 MG (20 MG, 1 IN 1 D), ORAL
     Route: 048
  2. ZOLOFT [Suspect]
     Indication: POST CONCUSSION SYNDROME
     Dosage: 50 MG (50 MG, 1 IN 1 D), ORAL
     Route: 048
  3. THYROID TAB [Concomitant]

REACTIONS (9)
  - ANXIETY [None]
  - APATHY [None]
  - ASTHENIA [None]
  - BACK PAIN [None]
  - DEPRESSION [None]
  - DRUG EFFECT DECREASED [None]
  - EXERCISE TOLERANCE DECREASED [None]
  - FATIGUE [None]
  - SOMNOLENCE [None]
